FAERS Safety Report 24563373 (Version 1)
Quarter: 2024Q4

REPORT INFORMATION
  Report Type: Spontaneous
  Country: US (occurrence: US)
  Receive Date: 20241030
  Receipt Date: 20241030
  Transmission Date: 20250114
  Serious: No
  Sender: ELI LILLY AND COMPANY
  Company Number: US-ELI_LILLY_AND_COMPANY-US202410017154

PATIENT
  Age: 50 Year
  Sex: Female

DRUGS (3)
  1. TIRZEPATIDE [Suspect]
     Active Substance: TIRZEPATIDE
     Indication: Weight control
     Dosage: 2.5 MG, UNKNOWN
     Route: 065
     Dates: start: 20241002
  2. PROZAC [Suspect]
     Active Substance: FLUOXETINE HYDROCHLORIDE
     Indication: Product used for unknown indication
     Dosage: UNK UNK, UNKNOWN
     Route: 065
  3. ABILIFY [Concomitant]
     Active Substance: ARIPIPRAZOLE
     Indication: Product used for unknown indication

REACTIONS (3)
  - Emotional distress [Not Recovered/Not Resolved]
  - Depression [Not Recovered/Not Resolved]
  - Product tampering [Not Recovered/Not Resolved]

NARRATIVE: CASE EVENT DATE: 20241002
